FAERS Safety Report 6052137-1 (Version None)
Quarter: 2009Q1

REPORT INFORMATION
  Report Type: 
  Country: None (occurrence: None)
  Receive Date: 20090126
  Receipt Date: 20090121
  Transmission Date: 20090719
  Serious: No
  Sender: FDA-Public Use
  Company Number: US-B.I. PHARMACEUTICALS,INC./RIDGEFIELD-2009-BP-00037BP

PATIENT
  Sex: Male

DRUGS (2)
  1. FLOMAX [Suspect]
     Indication: PROSTATOMEGALY
  2. FLOMAX [Suspect]
     Indication: DYSURIA

REACTIONS (1)
  - CATARACT [None]
